FAERS Safety Report 17153196 (Version 1)
Quarter: 2019Q4

REPORT INFORMATION
  Report Type: Spontaneous
  Country: US (occurrence: US)
  Receive Date: 20191213
  Receipt Date: 20191213
  Transmission Date: 20200122
  Serious: No
  Sender: FDA-Public Use
  Company Number: US-PFIZER INC-2019538233

PATIENT
  Age: 47 Year
  Sex: Female
  Weight: 81.65 kg

DRUGS (1)
  1. EUCRISA [Suspect]
     Active Substance: CRISABOROLE
     Indication: ECZEMA
     Dosage: UNK, 1X/DAY
     Route: 061
     Dates: start: 2018

REACTIONS (1)
  - Therapeutic product effect incomplete [Unknown]
